FAERS Safety Report 8292027-7 (Version None)
Quarter: 2012Q2

REPORT INFORMATION
  Report Type: 
  Country: None (occurrence: None)
  Receive Date: 20120417
  Receipt Date: 20120410
  Transmission Date: 20120825
  Serious: No
  Sender: FDA-Public Use
  Company Number: US-PFIZER INC-2012065660

PATIENT
  Sex: Female

DRUGS (4)
  1. CELEBREX [Suspect]
     Indication: NEURALGIA
     Dosage: 200 MG, 1CAP AM AND 1CAP PM
     Route: 048
     Dates: start: 20120101, end: 20120314
  2. VITAMIN D [Concomitant]
     Dosage: 50,000U, 1X WEEK
  3. FLINTSTONES MULTIPLE VITAMINS [Concomitant]
  4. CALCIUM CARBONATE [Concomitant]
     Dosage: UNK

REACTIONS (11)
  - ARTHRALGIA [None]
  - DRY EYE [None]
  - PRURITUS [None]
  - BACK PAIN [None]
  - BONE PAIN [None]
  - FATIGUE [None]
  - MYALGIA [None]
  - MUSCULOSKELETAL STIFFNESS [None]
  - URINE ODOUR ABNORMAL [None]
  - CHEST DISCOMFORT [None]
  - DRY SKIN [None]
